FAERS Safety Report 19928423 (Version 1)
Quarter: 2021Q4

REPORT INFORMATION
  Report Type: Spontaneous
  Country: US (occurrence: US)
  Receive Date: 20211006
  Receipt Date: 20211006
  Transmission Date: 20220304
  Serious: Yes (Life-Threatening, Disabling)
  Sender: FDA-Public Use
  Company Number: None

PATIENT
  Age: 64 Year
  Sex: Male

DRUGS (1)
  1. KENALOG-40 [Suspect]
     Active Substance: TRIAMCINOLONE ACETONIDE
     Indication: Neck pain
     Dates: start: 20201230, end: 20201230

REACTIONS (10)
  - Pain [None]
  - Loss of personal independence in daily activities [None]
  - Flushing [None]
  - Swelling [None]
  - Depressed level of consciousness [None]
  - Hypoaesthesia [None]
  - Formication [None]
  - Muscle atrophy [None]
  - General physical health deterioration [None]
  - Condition aggravated [None]

NARRATIVE: CASE EVENT DATE: 20201230
